FAERS Safety Report 7634500-8 (Version None)
Quarter: 2011Q3

REPORT INFORMATION
  Report Type: 
  Country: None (occurrence: None)
  Receive Date: 20110725
  Receipt Date: 20110720
  Transmission Date: 20111222
  Serious: Yes (Death, Hospitalization, Other)
  Sender: FDA-Public Use
  Company Number: US-CELGENEUS-163-21880-11050746

PATIENT
  Sex: Female
  Weight: 54.934 kg

DRUGS (8)
  1. LASIX [Concomitant]
     Indication: HYPERTENSION
     Dosage: 40 MILLIGRAM
     Route: 048
     Dates: start: 20100415
  2. FORTICAL [Concomitant]
     Indication: OSTEOPOROSIS
     Dosage: 200 UNITS
     Route: 045
     Dates: start: 20100428
  3. DILTIAZEM [Concomitant]
     Indication: HYPERTENSION
     Dosage: 360 MILLIGRAM
     Route: 048
     Dates: start: 20100415
  4. DIOVAN [Concomitant]
     Indication: HYPERTENSION
     Dosage: 320 MILLIGRAM
     Route: 048
     Dates: start: 20100415
  5. CALCIUM CARBONATE [Concomitant]
     Indication: OSTEOPOROSIS
     Dosage: 600 MILLIGRAM
     Route: 048
     Dates: start: 20100415
  6. VITAMIN D [Concomitant]
     Indication: OSTEOPOROSIS
     Dosage: 200 IU (INTERNATIONAL UNIT)
     Route: 048
     Dates: start: 20100415
  7. REVLIMID [Suspect]
     Indication: MULTIPLE MYELOMA
     Dosage: 15 MILLIGRAM
     Route: 048
     Dates: start: 20110301, end: 20110419
  8. CLONIDINE [Concomitant]
     Indication: HYPERTENSION
     Dosage: .1 MILLIGRAM
     Route: 048
     Dates: start: 20110127

REACTIONS (3)
  - PNEUMONIA [None]
  - DEATH [None]
  - BONE MARROW FAILURE [None]
